FAERS Safety Report 22901074 (Version 3)
Quarter: 2023Q4

REPORT INFORMATION
  Report Type: Report from Study
  Country: ZA (occurrence: ZA)
  Receive Date: 20230904
  Receipt Date: 20231109
  Transmission Date: 20240110
  Serious: Yes (Other)
  Sender: FDA-Public Use
  Company Number: ZA-002147023-NVSC2022ZA246687

PATIENT
  Age: 83 Year
  Sex: Female

DRUGS (2)
  1. BROLUCIZUMAB [Suspect]
     Active Substance: BROLUCIZUMAB
     Indication: Neovascular age-related macular degeneration
     Dosage: 0.05 MG IN 6 MG (27.6 MG IN 0.23 ML), QMO
     Route: 047
     Dates: start: 20210728
  2. BROLUCIZUMAB [Suspect]
     Active Substance: BROLUCIZUMAB
     Dosage: 0.05 MG IN 6 MG (27.6 MG IN 0.23 ML), QMO
     Route: 047

REACTIONS (2)
  - Dementia [Not Recovered/Not Resolved]
  - Illness [Unknown]
